FAERS Safety Report 21401317 (Version 1)
Quarter: 2022Q4

REPORT INFORMATION
  Report Type: Spontaneous
  Country: DE (occurrence: DE)
  Receive Date: 20221003
  Receipt Date: 20221003
  Transmission Date: 20230112
  Serious: Yes (Other)
  Sender: FDA-Public Use
  Company Number: DE-ROCHE-3180599

PATIENT
  Age: 64 Year
  Sex: Female

DRUGS (11)
  1. BENDAMUSTINE HYDROCHLORIDE [Suspect]
     Active Substance: BENDAMUSTINE HYDROCHLORIDE
     Indication: Diffuse large B-cell lymphoma
     Dosage: (FIRST LINE WITH POLATUZUMAB AND RITUXIMAB)
     Route: 042
     Dates: start: 20180101, end: 20180601
  2. BENDAMUSTINE HYDROCHLORIDE [Suspect]
     Active Substance: BENDAMUSTINE HYDROCHLORIDE
     Indication: Follicular lymphoma
     Dosage: (FIFTH LINE WITH RITUXIMAB AND POLATUZUMAB)
     Route: 042
     Dates: start: 20220401, end: 20220401
  3. CYCLOPHOSPHAMIDE\DOXORUBICIN\PREDNISONE\VINCRISTINE [Suspect]
     Active Substance: CYCLOPHOSPHAMIDE\DOXORUBICIN\PREDNISONE\VINCRISTINE
     Indication: Diffuse large B-cell lymphoma
     Dosage: (THIRD LINE WITH RITUXIMAB)
     Route: 065
     Dates: start: 20211001, end: 20211101
  4. CYCLOPHOSPHAMIDE\DOXORUBICIN\PREDNISONE\VINCRISTINE [Suspect]
     Active Substance: CYCLOPHOSPHAMIDE\DOXORUBICIN\PREDNISONE\VINCRISTINE
     Indication: Follicular lymphoma
     Route: 065
  5. RITUXIMAB [Suspect]
     Active Substance: RITUXIMAB
     Indication: Diffuse large B-cell lymphoma
     Dosage: (FIRST LINE WITH POLATUZUMAB AND BENDAMUSTINE HYDROCHLORIDE)
     Route: 065
     Dates: start: 20180101, end: 20180601
  6. RITUXIMAB [Suspect]
     Active Substance: RITUXIMAB
     Indication: Follicular lymphoma
     Dosage: SECOND LINE WITH 90 YTTRIUM IBRITUMOMAB- TIUXETAN)
     Route: 065
     Dates: start: 20191001, end: 20191001
  7. RITUXIMAB [Suspect]
     Active Substance: RITUXIMAB
     Dosage: (THIRD LINE WITCH CHOP)
     Route: 065
     Dates: start: 20211001, end: 20211101
  8. RITUXIMAB [Suspect]
     Active Substance: RITUXIMAB
     Dosage: (FOURTH LINE WITH ICE)
     Route: 065
     Dates: start: 20211201, end: 20220201
  9. RITUXIMAB [Suspect]
     Active Substance: RITUXIMAB
     Dosage: (FIFTH LINE WITH POLATUZUMAB AND BENDAMUSTINE HYDROCHLORIDE)
     Route: 065
     Dates: start: 20220401, end: 20220401
  10. POLATUZUMAB VEDOTIN [Suspect]
     Active Substance: POLATUZUMAB VEDOTIN
     Indication: Diffuse large B-cell lymphoma
     Dosage: (FIRST LINE WITH BENDAMUSTINE HYDROCHLORIDE AND RITUXIMAB)
     Route: 065
     Dates: start: 20180101, end: 20180601
  11. POLATUZUMAB VEDOTIN [Suspect]
     Active Substance: POLATUZUMAB VEDOTIN
     Indication: Follicular lymphoma
     Dosage: (FIFTH LINE WITH BENDAMUSTINE HYDROCHLORIDE AND RITUXIMAB)
     Route: 065
     Dates: start: 20220401, end: 20220401

REACTIONS (2)
  - Malignant neoplasm progression [Not Recovered/Not Resolved]
  - Off label use [Unknown]

NARRATIVE: CASE EVENT DATE: 20180101
